FAERS Safety Report 18065219 (Version 1)
Quarter: 2020Q3

REPORT INFORMATION
  Report Type: Spontaneous
  Country: US (occurrence: US)
  Receive Date: 20200724
  Receipt Date: 20200724
  Transmission Date: 20201103
  Serious: No
  Sender: FDA-Public Use
  Company Number: US-KAMADA LIMITED-2019US011014

PATIENT

DRUGS (31)
  1. PLAVIX [Suspect]
     Active Substance: CLOPIDOGREL BISULFATE
     Indication: PERIPHERAL VASCULAR DISORDER
     Dosage: UNK
     Route: 065
     Dates: start: 2019
  2. EPINEPHRINE. [Concomitant]
     Active Substance: EPINEPHRINE
     Dosage: UNK
     Route: 065
  3. LEVOFLOXACIN. [Concomitant]
     Active Substance: LEVOFLOXACIN
     Dosage: UNK
     Route: 065
  4. LOSARTAN. [Concomitant]
     Active Substance: LOSARTAN
     Dosage: UNK
     Route: 065
  5. SINGULAIR [Concomitant]
     Active Substance: MONTELUKAST SODIUM
     Dosage: UNK
     Route: 065
  6. OXYCODONE [Concomitant]
     Active Substance: OXYCODONE
     Dosage: UNK
     Route: 065
  7. LIDOCAINE/PRILOCAINE [Concomitant]
     Active Substance: LIDOCAINE\PRILOCAINE
     Dosage: UNK
     Route: 065
  8. LMX4 [Concomitant]
     Active Substance: LIDOCAINE
     Dosage: UNK
     Route: 065
  9. GUAIFENESIN DM [Concomitant]
     Active Substance: DEXTROMETHORPHAN\DEXTROMETHORPHAN HYDROBROMIDE\GUAIFENESIN
     Dosage: UNK
     Route: 065
  10. ADVAIR HFA [Concomitant]
     Active Substance: FLUTICASONE PROPIONATE\SALMETEROL XINAFOATE
     Dosage: UNK
     Route: 065
  11. PLAVIX [Suspect]
     Active Substance: CLOPIDOGREL BISULFATE
     Indication: STENT PLACEMENT
  12. GLASSIA [Suspect]
     Active Substance: .ALPHA.1-PROTEINASE INHIBITOR HUMAN
     Indication: ALPHA-1 ANTITRYPSIN DEFICIENCY
     Dosage: 60 MG/KG, 1/WEEK (950 MG VIAL)
     Route: 042
     Dates: start: 20110928
  13. PREDNISONE. [Concomitant]
     Active Substance: PREDNISONE
     Dosage: UNK
     Route: 065
  14. OMEPRAZOLE SODIUM;SODIUM BICARBONATE [Concomitant]
     Dosage: UNK
     Route: 065
  15. FLOVENT HFA [Concomitant]
     Active Substance: FLUTICASONE PROPIONATE
     Dosage: UNK
     Route: 065
  16. VITAMIN D3 [Concomitant]
     Active Substance: CHOLECALCIFEROL
     Dosage: UNK
     Route: 065
  17. FLONASE [Concomitant]
     Active Substance: FLUTICASONE PROPIONATE
     Dosage: UNK
     Route: 065
  18. SENNALAX [SENNOSIDE A+B] [Concomitant]
     Dosage: UNK
     Route: 065
  19. LORATADINE. [Concomitant]
     Active Substance: LORATADINE
     Dosage: UNK
     Route: 065
  20. VITAMIN B12 + FOLIC ACID [Concomitant]
     Active Substance: CYANOCOBALAMIN\FOLIC ACID
     Dosage: UNK
     Route: 065
  21. PROMETHAZINE DM [Concomitant]
     Active Substance: DEXTROMETHORPHAN HYDROBROMIDE\PROMETHAZINE HYDROCHLORIDE
     Dosage: UNK
     Route: 065
  22. AMBIEN [Concomitant]
     Active Substance: ZOLPIDEM TARTRATE
     Dosage: UNK
     Route: 065
  23. XOPENEX [Concomitant]
     Active Substance: LEVALBUTEROL HYDROCHLORIDE
     Dosage: UNK
     Route: 065
  24. INCRUSE ELLIPTA [Concomitant]
     Active Substance: UMECLIDINIUM BROMIDE
     Dosage: UNK
     Route: 065
  25. CARDIZEM CD [Concomitant]
     Active Substance: DILTIAZEM HYDROCHLORIDE
     Dosage: UNK
     Route: 065
  26. LEVALBUTEROL [LEVOSALBUTAMOL] [Concomitant]
     Active Substance: LEVALBUTEROL
     Dosage: UNK
     Route: 065
  27. FLUBLOK [Concomitant]
     Active Substance: INFLUENZA A VIRUS A/CALIFORNIA/7/2009 (H1N1) RECOMBINANT HEMAGGLUTININ ANTIGEN\INFLUENZA A VIRUS A/VICTORIA/361/2011 (H3N2) RECOMBINANT HEMAGGLUTININ ANTIGEN\INFLUENZA B VIRUS B/WISCONSIN/1/2010 RECOMBINANT HEMAGGLUTININ ANTIGEN
     Dosage: UNK
     Route: 065
  28. ESCITALOPRAM [Concomitant]
     Active Substance: ESCITALOPRAM OXALATE
     Dosage: UNK
     Route: 065
  29. HEPARIN [Concomitant]
     Active Substance: HEPARIN SODIUM
     Dosage: UNK
     Route: 065
  30. SODIUM CHLORIDE. [Concomitant]
     Active Substance: SODIUM CHLORIDE
     Dosage: UNK
     Route: 065
  31. TESSALON [Concomitant]
     Active Substance: BENZONATATE
     Dosage: UNK
     Route: 065

REACTIONS (2)
  - Contusion [Unknown]
  - Headache [Unknown]
